FAERS Safety Report 10790709 (Version 4)
Quarter: 2020Q2

REPORT INFORMATION
  Report Type: Report from Study
  Country: JP (occurrence: JP)
  Receive Date: 20150212
  Receipt Date: 20200423
  Transmission Date: 20200713
  Serious: Yes (Hospitalization, Other)
  Sender: FDA-Public Use
  Company Number: JP-GILEAD-2015-0136487

PATIENT
  Age: 39 Year
  Sex: Male
  Weight: 48.1 kg

DRUGS (22)
  1. NORVIR [Suspect]
     Active Substance: RITONAVIR
     Indication: HIV INFECTION
     Dosage: 100 MG, QD
     Route: 048
     Dates: start: 20130711, end: 20130929
  2. BENAMBAX [Concomitant]
     Active Substance: PENTAMIDINE
     Indication: ANTIFUNGAL PROPHYLAXIS
     Dosage: 300 MG, Q1MONTH
     Route: 042
     Dates: start: 20130521, end: 20130924
  3. SAMTIREL [Concomitant]
     Active Substance: ATOVAQUONE
  4. LEXIVA [Suspect]
     Active Substance: FOSAMPRENAVIR CALCIUM
     Indication: HIV INFECTION
     Dosage: UNK
     Route: 065
  5. TAKEPRON [Concomitant]
     Active Substance: LANSOPRAZOLE
     Indication: ATYPICAL MYCOBACTERIAL INFECTION
     Dosage: 15 MG, QD
     Route: 048
     Dates: start: 20130619, end: 20140312
  6. MYCOBUTIN [Suspect]
     Active Substance: RIFABUTIN
     Indication: ATYPICAL MYCOBACTERIAL INFECTION
     Dosage: 300 MG, QD
     Route: 048
     Dates: start: 20130521, end: 20140312
  7. ISENTRESS [Concomitant]
     Active Substance: RALTEGRAVIR POTASSIUM
     Indication: HIV INFECTION
     Dosage: 800 MG, QD
     Route: 048
     Dates: start: 20131010, end: 20140312
  8. ISCOTIN [Concomitant]
     Active Substance: ISONIAZID
     Indication: ATYPICAL MYCOBACTERIAL INFECTION
     Dosage: 300 MG, QD
     Route: 048
     Dates: start: 20130502, end: 20140312
  9. CLARITHROMYCIN. [Concomitant]
     Active Substance: CLARITHROMYCIN
     Indication: ATYPICAL MYCOBACTERIAL INFECTION
     Dosage: 400 MG, BID
     Route: 048
     Dates: start: 20130515, end: 20140312
  10. CLINDAMYCIN. [Concomitant]
     Active Substance: CLINDAMYCIN
  11. EMTRICITABINE;TENOFOVIR DISOPROXIL FUMARATE [Suspect]
     Active Substance: EMTRICITABINE\TENOFOVIR DISOPROXIL FUMARATE
     Indication: HIV INFECTION
     Dosage: 1 DOSAGE FORM, QD
     Route: 048
     Dates: start: 20130711, end: 20130929
  12. PREZISTANAIVE [Suspect]
     Active Substance: DARUNAVIR
     Indication: HIV INFECTION
     Dosage: 800 MG, QD
     Route: 048
     Dates: start: 20130711, end: 20130929
  13. EMTRICITABINE;TENOFOVIR DISOPROXIL FUMARATE [Suspect]
     Active Substance: EMTRICITABINE\TENOFOVIR DISOPROXIL FUMARATE
     Dosage: 1 DOSAGE FORM, QD
     Route: 048
     Dates: start: 20140317
  14. PYDOXAL [Concomitant]
     Active Substance: PYRIDOXAL
     Indication: NEUROPATHY PERIPHERAL
     Dosage: 1 DOSAGE FORM, QD
     Route: 048
     Dates: start: 20130502, end: 20140312
  15. CRAVIT [Concomitant]
     Active Substance: LEVOFLOXACIN
     Indication: ATYPICAL MYCOBACTERIAL INFECTION
     Dosage: 500 MG, QD
     Route: 048
     Dates: start: 20130530, end: 20130912
  16. ZYPREXA [Concomitant]
     Active Substance: OLANZAPINE
     Dosage: UNK
     Dates: start: 20131106
  17. LULICON [Concomitant]
     Active Substance: LULICONAZOLE
  18. LUCONAC [Concomitant]
  19. EMTRICITABINE;TENOFOVIR DISOPROXIL FUMARATE [Suspect]
     Active Substance: EMTRICITABINE\TENOFOVIR DISOPROXIL FUMARATE
     Dosage: 1 DOSAGE FORM, QD
     Route: 048
     Dates: start: 20131010, end: 20140312
  20. EBUTOL [ETHAMBUTOL DIHYDROCHLORIDE] [Concomitant]
     Indication: ATYPICAL MYCOBACTERIAL INFECTION
     Dosage: 1000 MG, QD
     Route: 048
     Dates: start: 20130502, end: 20140312
  21. CALCIUM FOLINATE [Concomitant]
     Active Substance: LEUCOVORIN CALCIUM
  22. AVELOX [Concomitant]
     Active Substance: MOXIFLOXACIN HYDROCHLORIDE

REACTIONS (8)
  - Mycobacterium avium complex infection [Recovered/Resolved]
  - Nausea [Recovering/Resolving]
  - Vomiting [Recovering/Resolving]
  - Cerebral toxoplasmosis [Not Recovered/Not Resolved]
  - Herpes zoster [Recovered/Resolved]
  - Nausea [Recovering/Resolving]
  - Immune reconstitution inflammatory syndrome [Recovered/Resolved]
  - Vomiting [Recovering/Resolving]

NARRATIVE: CASE EVENT DATE: 201308
